FAERS Safety Report 10241824 (Version 2)
Quarter: 2014Q2

REPORT INFORMATION
  Report Type: Spontaneous
  Country: US (occurrence: US)
  Receive Date: 20140617
  Receipt Date: 20140617
  Transmission Date: 20141212
  Serious: Yes (Death, Hospitalization, Disabling)
  Sender: FDA-Public Use
  Company Number: US-GLAXOSMITHKLINE-A0882806A

PATIENT
  Age: 78 Year
  Sex: Female
  Weight: 60.5 kg

DRUGS (1)
  1. AVANDIA [Suspect]
     Indication: TYPE 2 DIABETES MELLITUS
     Dosage: 8MG PER DAY
     Route: 048
     Dates: start: 20000112, end: 200711

REACTIONS (5)
  - Cardio-respiratory arrest [Fatal]
  - Cerebrovascular accident [Unknown]
  - Paralysis [Unknown]
  - Coronary artery disease [Unknown]
  - Atrial fibrillation [Unknown]
